FAERS Safety Report 7592927-7 (Version None)
Quarter: 2011Q3

REPORT INFORMATION
  Report Type: 
  Country: None (occurrence: None)
  Receive Date: 20110706
  Receipt Date: 20110628
  Transmission Date: 20111222
  Serious: Yes (Life-Threatening, Hospitalization)
  Sender: FDA-Public Use
  Company Number: FR-ROCHE-750057

PATIENT
  Sex: Male
  Weight: 84 kg

DRUGS (8)
  1. ACTEMRA [Suspect]
     Indication: RHEUMATOID ARTHRITIS
     Dosage: FORM:INFUSION
     Route: 042
     Dates: start: 20100921
  2. ACTEMRA [Suspect]
     Dosage: FORM: INFUSION.
     Route: 042
     Dates: start: 20101019, end: 20101019
  3. PREVISCAN [Suspect]
     Indication: DEEP VEIN THROMBOSIS
     Dosage: 1 DOSE FORM, START DATE: A LONG TIME AGO
     Route: 048
     Dates: end: 20101220
  4. CRESTOR [Concomitant]
     Dosage: ROUTE: PER OS
     Route: 048
  5. ACTEMRA [Suspect]
     Route: 042
     Dates: start: 20101116, end: 20101116
  6. ACTEMRA [Suspect]
     Route: 042
     Dates: start: 20101214, end: 20101214
  7. PREDNISONE [Suspect]
     Indication: RHEUMATOID ARTHRITIS
     Route: 048
     Dates: start: 20041101
  8. PRETERAX [Concomitant]
     Route: 048

REACTIONS (5)
  - HYPOVOLAEMIA [None]
  - RECTAL HAEMORRHAGE [None]
  - MELAENA [None]
  - GASTROINTESTINAL HAEMORRHAGE [None]
  - ANAEMIA [None]
